FAERS Safety Report 5515580-2 (Version None)
Quarter: 2007Q4

REPORT INFORMATION
  Report Type: 
  Country: None (occurrence: None)
  Receive Date: 20071113
  Receipt Date: 20070614
  Transmission Date: 20080405
  Serious: No
  Sender: FDA-Public Use
  Company Number: A0656590A

PATIENT
  Age: 85 Year
  Sex: Male

DRUGS (4)
  1. COREG [Suspect]
     Route: 048
  2. DIGOXIN [Concomitant]
  3. FUROSEMIDE [Concomitant]
  4. FLOMAX [Concomitant]

REACTIONS (4)
  - BURNING SENSATION [None]
  - INSOMNIA [None]
  - PARAESTHESIA [None]
  - SKIN DISCOLOURATION [None]
